FAERS Safety Report 23630159 (Version 1)
Quarter: 2024Q1

REPORT INFORMATION
  Report Type: Spontaneous
  Country: US (occurrence: US)
  Receive Date: 20240314
  Receipt Date: 20240314
  Transmission Date: 20240410
  Serious: No
  Sender: FDA-Public Use
  Company Number: US-TARO PHARMACEUTICALS USA INC.-2023TAR01057

PATIENT

DRUGS (1)
  1. TRETINOIN [Suspect]
     Active Substance: TRETINOIN
     Indication: Product used for unknown indication
     Dosage: UNK, OD, APPLYING THE CREAM ON HER FACE AND FOREHEAD, 3-4 TIMES PER WEEK, PEA SIZE AMOUNT
     Route: 061
     Dates: start: 20230914

REACTIONS (2)
  - Periorbital swelling [Recovered/Resolved]
  - Application site discolouration [Recovered/Resolved]
